FAERS Safety Report 8416331-4 (Version None)
Quarter: 2012Q2

REPORT INFORMATION
  Report Type: 
  Country: None (occurrence: None)
  Receive Date: 20120606
  Receipt Date: 20120523
  Transmission Date: 20120825
  Serious: Yes (Other)
  Sender: FDA-Public Use
  Company Number: FR-CELGENEUS-056-21880-12012689

PATIENT
  Sex: Female
  Weight: 55 kg

DRUGS (5)
  1. REVLIMID [Suspect]
     Route: 048
     Dates: end: 20120125
  2. ERYTHROPOIESIS STIMULATING AGENT [Concomitant]
     Indication: COLONY STIMULATING FACTOR THERAPY
     Route: 065
  3. REVLIMID [Suspect]
     Indication: DIFFUSE LARGE B-CELL LYMPHOMA
     Dosage: 10 MILLIGRAM
     Route: 048
     Dates: start: 20100617, end: 20111228
  4. ASPIRIN [Concomitant]
     Route: 065
     Dates: start: 20100617, end: 20120125
  5. COLONY-STIMULATING FACTOR [Concomitant]
     Indication: COLONY STIMULATING FACTOR THERAPY
     Route: 065

REACTIONS (1)
  - ENDOMETRIAL CANCER [None]
